FAERS Safety Report 25681895 (Version 1)
Quarter: 2025Q3

REPORT INFORMATION
  Report Type: Other
  Country: EG (occurrence: EG)
  Receive Date: 20250814
  Receipt Date: 20250814
  Transmission Date: 20251020
  Serious: Yes (Hospitalization)
  Sender: CUMBERLAND PHARMACEUTICALS INC.
  Company Number: EG-Cumberland Pharmaceuticals Inc.-2182489

PATIENT
  Age: 36 Year
  Sex: Female

DRUGS (1)
  1. CALDOLOR [Suspect]
     Active Substance: IBUPROFEN
     Indication: Abdominal pain

REACTIONS (3)
  - Administration site discolouration [Recovered/Resolved]
  - Administration site extravasation [Recovered/Resolved]
  - Administration site oedema [Recovered/Resolved]
